FAERS Safety Report 6887192-X (Version None)
Quarter: 2010Q3

REPORT INFORMATION
  Report Type: 
  Country: None (occurrence: None)
  Receive Date: 20100730
  Receipt Date: 20100720
  Transmission Date: 20110219
  Serious: Yes (Other)
  Sender: FDA-Public Use
  Company Number: AU-PFIZER INC-2010047939

PATIENT
  Age: 55 Year
  Sex: Female
  Weight: 70 kg

DRUGS (2)
  1. CHAMPIX [Suspect]
     Indication: SMOKING CESSATION THERAPY
     Dosage: 1 MG, 2X/DAY
     Route: 048
     Dates: start: 20100315, end: 20100415
  2. ACETAMINOPHEN W/ CODEINE [Concomitant]
     Dosage: UNK

REACTIONS (7)
  - DRY MOUTH [None]
  - DYSARTHRIA [None]
  - DYSTONIA [None]
  - HEADACHE [None]
  - MALAISE [None]
  - NAUSEA [None]
  - RESTLESS LEGS SYNDROME [None]
